FAERS Safety Report 5023774-8 (Version None)
Quarter: 2006Q2

REPORT INFORMATION
  Report Type: 
  Country: None (occurrence: None)
  Receive Date: 20060606
  Receipt Date: 20060522
  Transmission Date: 20061013
  Serious: Yes (Other)
  Sender: FDA-Public Use
  Company Number: HQWYE817904AUG04

PATIENT
  Age: 50 Year
  Sex: Female
  Weight: 136.2 kg

DRUGS (3)
  1. PREMPRO [Suspect]
     Indication: HORMONE REPLACEMENT THERAPY
     Dosage: 0.625/2.5 MG, ORAL
     Route: 048
     Dates: start: 19970101, end: 20010101
  2. PREMARIN [Suspect]
     Dosage: ORAL
     Route: 048
     Dates: start: 19960101, end: 19970101
  3. PROVERA [Suspect]
     Dosage: 2.5MG, ORAL
     Route: 048
     Dates: start: 19960101, end: 19970101

REACTIONS (10)
  - BREAST CANCER METASTATIC [None]
  - CELLULITIS [None]
  - CHILLS [None]
  - HAEMATOMA [None]
  - LUNG NEOPLASM [None]
  - LYMPHOEDEMA [None]
  - METASTASES TO LUNG [None]
  - METASTASES TO LYMPH NODES [None]
  - PERIODONTAL DISEASE [None]
  - SPINAL OSTEOARTHRITIS [None]
